FAERS Safety Report 13038068 (Version 1)
Quarter: 2016Q4

REPORT INFORMATION
  Report Type: Spontaneous
  Country: US (occurrence: US)
  Receive Date: 20161214
  Receipt Date: 20161214
  Transmission Date: 20170207
  Serious: Yes (Hospitalization)
  Sender: FDA-Public Use
  Company Number: None

PATIENT
  Age: 48 Year
  Sex: Male
  Weight: 81.5 kg

DRUGS (1)
  1. MELOXICAM. [Suspect]
     Active Substance: MELOXICAM
     Indication: PAIN
     Dates: start: 20160801, end: 20161031

REACTIONS (4)
  - Haematocrit decreased [None]
  - Gastric haemorrhage [None]
  - Haemoglobin decreased [None]
  - Duodenal ulcer haemorrhage [None]

NARRATIVE: CASE EVENT DATE: 20161031
